FAERS Safety Report 5803641-X (Version None)
Quarter: 2008Q3

REPORT INFORMATION
  Report Type: 
  Country: None (occurrence: None)
  Receive Date: 20080708
  Receipt Date: 20080626
  Transmission Date: 20090109
  Serious: Yes (Hospitalization)
  Sender: FDA-Public Use
  Company Number: US-PFIZER INC-2008054529

PATIENT
  Age: 50 Year
  Sex: Female

DRUGS (1)
  1. VARENICLINE TABLETS [Suspect]
     Indication: SMOKING CESSATION THERAPY

REACTIONS (15)
  - AFFECT LABILITY [None]
  - AGITATION [None]
  - ASTHENIA [None]
  - BIPOLAR DISORDER [None]
  - COGNITIVE DISORDER [None]
  - CRYING [None]
  - DISTRACTIBILITY [None]
  - ENERGY INCREASED [None]
  - FATIGUE [None]
  - FLIGHT OF IDEAS [None]
  - IRRITABILITY [None]
  - JUDGEMENT IMPAIRED [None]
  - PARANOIA [None]
  - POOR QUALITY SLEEP [None]
  - PRESSURE OF SPEECH [None]
